FAERS Safety Report 10881691 (Version 1)
Quarter: 2015Q1

REPORT INFORMATION
  Report Type: Spontaneous
  Country: FR (occurrence: FR)
  Receive Date: 20150303
  Receipt Date: 20150303
  Transmission Date: 20150721
  Serious: Yes (Other)
  Sender: FDA-Public Use
  Company Number: FR-SA-2015SA024328

PATIENT
  Age: 66 Year
  Sex: Male

DRUGS (4)
  1. ALTEIS [Concomitant]
     Active Substance: OLMESARTAN MEDOXOMIL
     Indication: HYPERTENSION
     Route: 048
  2. IPERTEN [Concomitant]
     Active Substance: MANIDIPINE
     Indication: HYPERTENSION
     Route: 048
  3. METFORMIN [Concomitant]
     Active Substance: METFORMIN HYDROCHLORIDE
     Indication: TYPE 2 DIABETES MELLITUS
     Route: 048
  4. AMAREL [Suspect]
     Active Substance: GLIMEPIRIDE
     Indication: TYPE 2 DIABETES MELLITUS
     Route: 048
     Dates: start: 2010

REACTIONS (2)
  - Dysarthria [Unknown]
  - Speech disorder [Unknown]

NARRATIVE: CASE EVENT DATE: 201405
